FAERS Safety Report 4386404-4 (Version None)
Quarter: 2004Q2

REPORT INFORMATION
  Report Type: 
  Country: None (occurrence: None)
  Receive Date: 20040629
  Receipt Date: 20040603
  Transmission Date: 20050107
  Serious: Yes (Death, Hospitalization)
  Sender: FDA-Public Use
  Company Number: KP-AMGEN-US079788

PATIENT
  Age: 35 Year
  Sex: Female

DRUGS (1)
  1. ENBREL [Suspect]
     Indication: GRAFT VERSUS HOST DISEASE
     Route: 058
     Dates: start: 20040101, end: 20040101

REACTIONS (1)
  - DEATH [None]
